FAERS Safety Report 6265192-0 (Version None)
Quarter: 2009Q3

REPORT INFORMATION
  Report Type: 
  Country: None (occurrence: None)
  Receive Date: 20090713
  Receipt Date: 20090701
  Transmission Date: 20100115
  Serious: Yes (Hospitalization)
  Sender: FDA-Public Use
  Company Number: PHHY2009CH26887

PATIENT
  Age: 45 Year
  Sex: Female

DRUGS (1)
  1. VOLTAREN [Suspect]
     Indication: BACK PAIN
     Dosage: 50 MG, UNK
     Dates: end: 20081209

REACTIONS (4)
  - ANAEMIA [None]
  - GASTRITIS HAEMORRHAGIC [None]
  - HIATUS HERNIA [None]
  - REFLUX OESOPHAGITIS [None]
